FAERS Safety Report 23042347 (Version 1)
Quarter: 2023Q4

REPORT INFORMATION
  Report Type: Spontaneous
  Country: US (occurrence: US)
  Receive Date: 20231008
  Receipt Date: 20231008
  Transmission Date: 20240110
  Serious: No
  Sender: FDA-Public Use
  Company Number: US-ELI_LILLY_AND_COMPANY-US202310003572

PATIENT
  Sex: Female

DRUGS (1)
  1. FORTEO [Suspect]
     Active Substance: TERIPARATIDE
     Indication: Product used for unknown indication
     Dosage: UNK UNK, UNKNOWN
     Route: 065
     Dates: start: 2022

REACTIONS (6)
  - Pain in extremity [Unknown]
  - Inflammation [Unknown]
  - Gait disturbance [Unknown]
  - White blood cell count decreased [Unknown]
  - Musculoskeletal discomfort [Unknown]
  - Arthralgia [Unknown]
